FAERS Safety Report 6879106-3 (Version None)
Quarter: 2010Q3

REPORT INFORMATION
  Report Type: 
  Country: None (occurrence: None)
  Receive Date: 20100728
  Receipt Date: 20100715
  Transmission Date: 20110219
  Serious: Yes (Other)
  Sender: FDA-Public Use
  Company Number: US-BAYER-201026248NA

PATIENT
  Age: 45 Year
  Sex: Female

DRUGS (16)
  1. BETASERON [Suspect]
     Indication: RELAPSING-REMITTING MULTIPLE SCLEROSIS
     Dosage: AS USED: 2 MIU
     Route: 058
     Dates: start: 20040627, end: 20040629
  2. STEROIDS [Concomitant]
     Indication: MULTIPLE SCLEROSIS RELAPSE
     Route: 042
  3. STEROIDS [Concomitant]
     Route: 042
     Dates: start: 20040701
  4. LEVOTHYROXINE [Concomitant]
  5. PREMARIN [Concomitant]
  6. BACLOFEN [Concomitant]
  7. ETODOLAC [Concomitant]
  8. NEURONTIN [Concomitant]
  9. TOPAMAX [Concomitant]
  10. PROVIGIL [Concomitant]
  11. SOMA [Concomitant]
     Dosage: GENERIC
  12. DARVOCET GENERIC [Concomitant]
     Dosage: GENERIC
  13. CLONAZEPAM [Concomitant]
  14. AMBIEN [Concomitant]
  15. MULTI-VITAMINS [Concomitant]
  16. AVONEX [Concomitant]
     Dates: start: 19990701, end: 20040411

REACTIONS (25)
  - ANAPHYLACTIC REACTION [None]
  - ANXIETY [None]
  - APHAGIA [None]
  - CHILLS [None]
  - COORDINATION ABNORMAL [None]
  - DYSGEUSIA [None]
  - DYSPNOEA [None]
  - ERYTHEMA [None]
  - FATIGUE [None]
  - FEELING OF BODY TEMPERATURE CHANGE [None]
  - HEADACHE [None]
  - HYPERHIDROSIS [None]
  - INFLUENZA LIKE ILLNESS [None]
  - INJECTION SITE ERYTHEMA [None]
  - INJECTION SITE PAIN [None]
  - INJECTION SITE REACTION [None]
  - INJECTION SITE SWELLING [None]
  - IRRITABILITY [None]
  - MOOD ALTERED [None]
  - NIGHT SWEATS [None]
  - PALPITATIONS [None]
  - PERIPHERAL COLDNESS [None]
  - PYREXIA [None]
  - SWOLLEN TONGUE [None]
  - TONGUE DISCOLOURATION [None]
